FAERS Safety Report 25551286 (Version 1)
Quarter: 2025Q3

REPORT INFORMATION
  Report Type: Spontaneous
  Country: CA (occurrence: CA)
  Receive Date: 20250714
  Receipt Date: 20250714
  Transmission Date: 20251021
  Serious: Yes (Hospitalization)
  Sender: MYLAN
  Company Number: CA-MYLANLABS-2025M1057851

PATIENT
  Age: 36 Year
  Sex: Female

DRUGS (48)
  1. DILANTIN [Suspect]
     Active Substance: PHENYTOIN
     Indication: Product used for unknown indication
  2. DILANTIN [Suspect]
     Active Substance: PHENYTOIN
  3. DILANTIN [Suspect]
     Active Substance: PHENYTOIN
     Route: 048
  4. DILANTIN [Suspect]
     Active Substance: PHENYTOIN
     Route: 048
  5. DILANTIN [Suspect]
     Active Substance: PHENYTOIN
  6. DILANTIN [Suspect]
     Active Substance: PHENYTOIN
  7. DILANTIN [Suspect]
     Active Substance: PHENYTOIN
     Route: 048
  8. DILANTIN [Suspect]
     Active Substance: PHENYTOIN
     Route: 048
  9. DILANTIN [Suspect]
     Active Substance: PHENYTOIN
  10. DILANTIN [Suspect]
     Active Substance: PHENYTOIN
     Route: 048
  11. DILANTIN [Suspect]
     Active Substance: PHENYTOIN
  12. DILANTIN [Suspect]
     Active Substance: PHENYTOIN
     Route: 048
  13. XCOPRI [Suspect]
     Active Substance: CENOBAMATE
     Indication: Epilepsy
     Dosage: 125 MILLIGRAM, QD (1 EVERY 1 DAYS)
  14. XCOPRI [Suspect]
     Active Substance: CENOBAMATE
     Dosage: 125 MILLIGRAM, QD (1 EVERY 1 DAYS)
  15. XCOPRI [Suspect]
     Active Substance: CENOBAMATE
     Dosage: 125 MILLIGRAM, QD (1 EVERY 1 DAYS)
     Route: 048
  16. XCOPRI [Suspect]
     Active Substance: CENOBAMATE
     Dosage: 125 MILLIGRAM, QD (1 EVERY 1 DAYS)
     Route: 048
  17. XCOPRI [Suspect]
     Active Substance: CENOBAMATE
     Dosage: 150 MILLIGRAM, QD (1 EVERY 1 DAYS)
  18. XCOPRI [Suspect]
     Active Substance: CENOBAMATE
     Dosage: 150 MILLIGRAM, QD (1 EVERY 1 DAYS)
  19. XCOPRI [Suspect]
     Active Substance: CENOBAMATE
     Dosage: 150 MILLIGRAM, QD (1 EVERY 1 DAYS)
     Route: 048
  20. XCOPRI [Suspect]
     Active Substance: CENOBAMATE
     Dosage: 150 MILLIGRAM, QD (1 EVERY 1 DAYS)
     Route: 048
  21. XCOPRI [Suspect]
     Active Substance: CENOBAMATE
     Dosage: 100 MILLIGRAM, QD (1 EVERY 1 DAYS)
  22. XCOPRI [Suspect]
     Active Substance: CENOBAMATE
     Dosage: 100 MILLIGRAM, QD (1 EVERY 1 DAYS)
     Route: 048
  23. XCOPRI [Suspect]
     Active Substance: CENOBAMATE
     Dosage: 100 MILLIGRAM, QD (1 EVERY 1 DAYS)
  24. XCOPRI [Suspect]
     Active Substance: CENOBAMATE
     Dosage: 100 MILLIGRAM, QD (1 EVERY 1 DAYS)
     Route: 048
  25. XCOPRI [Suspect]
     Active Substance: CENOBAMATE
     Dosage: 75 MILLIGRAM, QD (1 EVERY 1 DAYS)
  26. XCOPRI [Suspect]
     Active Substance: CENOBAMATE
     Dosage: 75 MILLIGRAM, QD (1 EVERY 1 DAYS)
  27. XCOPRI [Suspect]
     Active Substance: CENOBAMATE
     Dosage: 75 MILLIGRAM, QD (1 EVERY 1 DAYS)
     Route: 048
  28. XCOPRI [Suspect]
     Active Substance: CENOBAMATE
     Dosage: 75 MILLIGRAM, QD (1 EVERY 1 DAYS)
     Route: 048
  29. XCOPRI [Suspect]
     Active Substance: CENOBAMATE
     Dosage: 50 MILLIGRAM, QD (1 EVERY 1 DAYS)
  30. XCOPRI [Suspect]
     Active Substance: CENOBAMATE
     Dosage: 50 MILLIGRAM, QD (1 EVERY 1 DAYS)
  31. XCOPRI [Suspect]
     Active Substance: CENOBAMATE
     Dosage: 50 MILLIGRAM, QD (1 EVERY 1 DAYS)
     Route: 048
  32. XCOPRI [Suspect]
     Active Substance: CENOBAMATE
     Dosage: 50 MILLIGRAM, QD (1 EVERY 1 DAYS)
     Route: 048
  33. XCOPRI [Suspect]
     Active Substance: CENOBAMATE
     Dosage: 25 MILLIGRAM, QD (1 EVERY 1 DAYS)
  34. XCOPRI [Suspect]
     Active Substance: CENOBAMATE
     Dosage: 25 MILLIGRAM, QD (1 EVERY 1 DAYS)
  35. XCOPRI [Suspect]
     Active Substance: CENOBAMATE
     Dosage: 25 MILLIGRAM, QD (1 EVERY 1 DAYS)
     Route: 048
  36. XCOPRI [Suspect]
     Active Substance: CENOBAMATE
     Dosage: 25 MILLIGRAM, QD (1 EVERY 1 DAYS)
     Route: 048
  37. XCOPRI [Suspect]
     Active Substance: CENOBAMATE
     Dosage: 12.5 MILLIGRAM, QD (1 EVERY 1 DAYS)
  38. XCOPRI [Suspect]
     Active Substance: CENOBAMATE
     Dosage: 12.5 MILLIGRAM, QD (1 EVERY 1 DAYS)
  39. XCOPRI [Suspect]
     Active Substance: CENOBAMATE
     Dosage: 12.5 MILLIGRAM, QD (1 EVERY 1 DAYS)
     Route: 048
  40. XCOPRI [Suspect]
     Active Substance: CENOBAMATE
     Dosage: 12.5 MILLIGRAM, QD (1 EVERY 1 DAYS)
     Route: 048
  41. APTIOM [Concomitant]
     Active Substance: ESLICARBAZEPINE ACETATE
  42. APTIOM [Concomitant]
     Active Substance: ESLICARBAZEPINE ACETATE
     Route: 065
  43. APTIOM [Concomitant]
     Active Substance: ESLICARBAZEPINE ACETATE
     Route: 065
  44. APTIOM [Concomitant]
     Active Substance: ESLICARBAZEPINE ACETATE
  45. TOPIRAMATE [Concomitant]
     Active Substance: TOPIRAMATE
  46. TOPIRAMATE [Concomitant]
     Active Substance: TOPIRAMATE
     Route: 065
  47. TOPIRAMATE [Concomitant]
     Active Substance: TOPIRAMATE
     Route: 065
  48. TOPIRAMATE [Concomitant]
     Active Substance: TOPIRAMATE

REACTIONS (16)
  - Asthenia [Unknown]
  - Balance disorder [Unknown]
  - Decreased appetite [Unknown]
  - Dysarthria [Unknown]
  - Fall [Unknown]
  - Gait disturbance [Unknown]
  - Injury [Unknown]
  - Muscular weakness [Unknown]
  - Weight decreased [Unknown]
  - Seizure [Unknown]
  - Vision blurred [Unknown]
  - Dizziness [Unknown]
  - Nausea [Unknown]
  - Vomiting [Unknown]
  - Labelled drug-drug interaction issue [Unknown]
  - Off label use [Unknown]
